FAERS Safety Report 17943724 (Version 3)
Quarter: 2020Q3

REPORT INFORMATION
  Report Type: Report from Study
  Country: DE (occurrence: DE)
  Receive Date: 20200625
  Receipt Date: 20200730
  Transmission Date: 20201103
  Serious: Yes (Congenital Anomaly)
  Sender: FDA-Public Use
  Company Number: DE-TEVA-2020-DE-1791135

PATIENT
  Sex: Male
  Weight: 2.8 kg

DRUGS (9)
  1. COMBIVIR [Suspect]
     Active Substance: LAMIVUDINE\ZIDOVUDINE
     Dosage: 900 MILLIGRAM DAILY;
     Route: 064
  2. NORVIR [Suspect]
     Active Substance: RITONAVIR
     Dosage: 400 MILLIGRAM DAILY;
     Route: 064
  3. LAMIVUDINE/ZIDOVUDINE [Suspect]
     Active Substance: LAMIVUDINE\ZIDOVUDINE
     Dosage: UNK
     Route: 064
  4. EPIVIR [Suspect]
     Active Substance: LAMIVUDINE
     Dosage: 300 MILLIGRAM DAILY;
     Route: 064
     Dates: start: 20040729, end: 20050216
  5. LAMIVUDINE. [Suspect]
     Active Substance: LAMIVUDINE
     Dosage: 300 MILLIGRAM DAILY;
     Route: 064
     Dates: start: 20040729, end: 20050216
  6. VIREAD [Suspect]
     Active Substance: TENOFOVIR DISOPROXIL FUMARATE
     Dosage: 300 MILLIGRAM DAILY;
     Route: 064
     Dates: start: 20040729
  7. LAMIVUDINE. [Suspect]
     Active Substance: LAMIVUDINE
     Dosage: UNK
     Route: 064
  8. TENOFOVIR [Suspect]
     Active Substance: TENOFOVIR
     Dosage: 300 MILLIGRAM DAILY;
     Route: 064
  9. RITONAVIR. [Suspect]
     Active Substance: RITONAVIR
     Indication: ANTIRETROVIRAL THERAPY
     Dosage: 400 MILLIGRAM DAILY;
     Route: 064

REACTIONS (2)
  - Diaphragmatic hernia [Unknown]
  - Foetal exposure during pregnancy [Unknown]

NARRATIVE: CASE EVENT DATE: 20060718
